FAERS Safety Report 24603100 (Version 2)
Quarter: 2024Q4

REPORT INFORMATION
  Report Type: Spontaneous
  Country: US (occurrence: US)
  Receive Date: 20241111
  Receipt Date: 20241125
  Transmission Date: 20250115
  Serious: Yes (Death, Hospitalization)
  Sender: TEVA
  Company Number: US-TEVA-VS-3262421

PATIENT
  Age: 45 Year
  Sex: Male

DRUGS (1)
  1. FENTANYL [Suspect]
     Active Substance: FENTANYL
     Indication: Product used for unknown indication
     Route: 065

REACTIONS (9)
  - CHANTER syndrome [Fatal]
  - Cerebral infarction [Fatal]
  - Nervous system disorder [Fatal]
  - Necrosis [Fatal]
  - Unresponsive to stimuli [Fatal]
  - Haemorrhage [Fatal]
  - Eosinophilia [Fatal]
  - Angiopathy [Fatal]
  - Toxicity to various agents [Fatal]
